FAERS Safety Report 7327344-8 (Version None)
Quarter: 2011Q1

REPORT INFORMATION
  Report Type: 
  Country: None (occurrence: None)
  Receive Date: 20110302
  Receipt Date: 20110222
  Transmission Date: 20110831
  Serious: Yes (Hospitalization)
  Sender: FDA-Public Use
  Company Number: US-GILEAD-2010-0032545

PATIENT
  Sex: Male
  Weight: 122.58 kg

DRUGS (9)
  1. QUINAPRIL [Concomitant]
  2. ZOLPIDEM [Concomitant]
  3. FLOMAX [Concomitant]
  4. LETAIRIS [Suspect]
     Indication: PULMONARY HYPERTENSION
     Route: 048
     Dates: start: 20100212
  5. LASIX [Concomitant]
  6. ASA [Concomitant]
  7. SAW PALMETTO [Concomitant]
  8. GLUCOSAMINE [Concomitant]
  9. TOPROL-XL [Concomitant]

REACTIONS (2)
  - OEDEMA [None]
  - SKIN INFECTION [None]
